FAERS Safety Report 6510909-0 (Version None)
Quarter: 2009Q4

REPORT INFORMATION
  Report Type: 
  Country: None (occurrence: None)
  Receive Date: 20091222
  Receipt Date: 20090202
  Transmission Date: 20100525
  Serious: No
  Sender: FDA-Public Use
  Company Number: US-ASTRAZENECA-2009UW02949

PATIENT
  Age: 82 Year
  Sex: Female
  Weight: 90.7 kg

DRUGS (3)
  1. CRESTOR [Suspect]
     Indication: BLOOD CHOLESTEROL INCREASED
     Route: 048
     Dates: start: 20070201
  2. TYLENOL (CAPLET) [Concomitant]
     Indication: PAIN IN EXTREMITY
     Route: 048
  3. ADVIL [Concomitant]
     Indication: PAIN IN EXTREMITY
     Route: 048

REACTIONS (3)
  - ASTHENIA [None]
  - GAIT DISTURBANCE [None]
  - PARAESTHESIA [None]
